FAERS Safety Report 9123627 (Version 2)
Quarter: 2013Q2

REPORT INFORMATION
  Report Type: Spontaneous
  Country: NG (occurrence: NG)
  Receive Date: 20130227
  Receipt Date: 20130409
  Transmission Date: 20140414
  Serious: Yes (Hospitalization, Other)
  Sender: FDA-Public Use
  Company Number: NG-UCBSA-078957

PATIENT
  Age: 26 Year
  Sex: Male

DRUGS (3)
  1. KEPPRA [Suspect]
     Indication: CONVULSION
     Route: 048
     Dates: start: 20130212, end: 20130212
  2. EPILIM [Concomitant]
     Dosage: UNKNOWN DOSE
     Dates: start: 20130110
  3. TEGRETOL CR [Concomitant]
     Dosage: UNKNOWN DOSE
     Dates: start: 20130110

REACTIONS (3)
  - Psychotic disorder [Recovered/Resolved]
  - Euphoric mood [Recovered/Resolved]
  - Aggression [Recovering/Resolving]
